FAERS Safety Report 20217582 (Version 1)
Quarter: 2021Q4

REPORT INFORMATION
  Report Type: Spontaneous
  Country: EE (occurrence: EE)
  Receive Date: 20211222
  Receipt Date: 20211222
  Transmission Date: 20220303
  Serious: Yes (Other)
  Sender: FDA-Public Use
  Company Number: None

PATIENT
  Age: 40 Year
  Sex: Female
  Weight: 62 kg

DRUGS (3)
  1. OLANZAPINE [Suspect]
     Active Substance: OLANZAPINE
     Dosage: 13.01.2021-17.02.2021 1 TBL ONCE A DAY; 17.02.21-15.04.21 1/2 TBL ONCE A DAY.  ,OLANZAPINE ACTAVIS 1
     Route: 048
     Dates: start: 20210113, end: 20210415
  2. ARIPIPRAZOLE [Suspect]
     Active Substance: ARIPIPRAZOLE
     Dosage: 1/4 OF A TABLET ONCE A DAY  ,ZYKALOR 10 MG TABLETS
     Route: 048
     Dates: start: 20210415, end: 20210515
  3. ABILIFY [Suspect]
     Active Substance: ARIPIPRAZOLE
     Dosage: 1/2 TBL 1X DAY
     Route: 048
     Dates: start: 20210609, end: 20211012

REACTIONS (13)
  - Depressed level of consciousness [Unknown]
  - Hepatic cirrhosis [Unknown]
  - Dyspnoea [Unknown]
  - Weight increased [Unknown]
  - Akathisia [Unknown]
  - Irritability [Unknown]
  - Intraocular pressure increased [Unknown]
  - Muscle spasms [Unknown]
  - Hyperhidrosis [Unknown]
  - Skin depigmentation [Unknown]
  - Musculoskeletal stiffness [Unknown]
  - Somnolence [Unknown]
  - Somnolence [Unknown]

NARRATIVE: CASE EVENT DATE: 20210415
